FAERS Safety Report 13744878 (Version 2)
Quarter: 2017Q3

REPORT INFORMATION
  Report Type: Spontaneous
  Country: US (occurrence: US)
  Receive Date: 20170712
  Receipt Date: 20170807
  Transmission Date: 20171127
  Serious: No
  Sender: FDA-Public Use
  Company Number: US-PFIZER INC-2017299245

PATIENT
  Sex: Female

DRUGS (1)
  1. XELJANZ XR [Suspect]
     Active Substance: TOFACITINIB CITRATE
     Dosage: 11 MG, 1X/DAY

REACTIONS (6)
  - Dry eye [Unknown]
  - Soft tissue disorder [Unknown]
  - Skin discolouration [Unknown]
  - Pain in extremity [Unknown]
  - Night sweats [Unknown]
  - Arthralgia [Recovering/Resolving]
